FAERS Safety Report 12143345 (Version 1)
Quarter: 2016Q1

REPORT INFORMATION
  Report Type: Report from Study
  Country: US (occurrence: US)
  Receive Date: 20160304
  Receipt Date: 20160304
  Transmission Date: 20160526
  Serious: Yes (Life-Threatening, Hospitalization, Disabling, Other)
  Sender: FDA-Public Use
  Company Number: US-BEH-2016059534

PATIENT

DRUGS (1)
  1. ZEMAIRA [Suspect]
     Active Substance: .ALPHA.1-PROTEINASE INHIBITOR HUMAN
     Indication: ACUTE GRAFT VERSUS HOST DISEASE

REACTIONS (10)
  - Fatigue [Recovered/Resolved]
  - Back pain [Recovered/Resolved]
  - Hypoalbuminaemia [Recovered/Resolved]
  - Hypoxia [Not Recovered/Not Resolved]
  - Abdominal pain [Recovered/Resolved]
  - Spinal fracture [Unknown]
  - Hyperglycaemia [Recovered/Resolved]
  - Respiratory distress [Not Recovered/Not Resolved]
  - Pleural effusion [Not Recovered/Not Resolved]
  - Decreased appetite [Unknown]

NARRATIVE: CASE EVENT DATE: 20140426
